FAERS Safety Report 19473122 (Version 1)
Quarter: 2021Q2

REPORT INFORMATION
  Report Type: Spontaneous
  Country: SE (occurrence: SE)
  Receive Date: 20210629
  Receipt Date: 20210629
  Transmission Date: 20210717
  Serious: Yes (Life-Threatening, Hospitalization, Disabling)
  Sender: FDA-Public Use
  Company Number: SE-SAMSUNG BIOEPIS-SB-2021-15760

PATIENT
  Age: 76 Year
  Sex: Female
  Weight: 60 kg

DRUGS (1)
  1. BENEPALI [Suspect]
     Active Substance: ETANERCEPT
     Indication: RHEUMATOID ARTHRITIS
     Dosage: SOLUTION FOR INJECTION IN A PRE?FILLED SYRINGE
     Route: 065
     Dates: start: 20200803

REACTIONS (2)
  - Arthritis bacterial [Recovered/Resolved with Sequelae]
  - Vaccination site pain [Recovering/Resolving]

NARRATIVE: CASE EVENT DATE: 20210419
